FAERS Safety Report 16406718 (Version 5)
Quarter: 2020Q2

REPORT INFORMATION
  Report Type: Report from Study
  Country: US (occurrence: US)
  Receive Date: 20190607
  Receipt Date: 20200418
  Transmission Date: 20200713
  Serious: No
  Sender: FDA-Public Use
  Company Number: PHEH2019US023847

PATIENT
  Age: 83 Year
  Sex: Female

DRUGS (1)
  1. ENTRESTO [Suspect]
     Active Substance: SACUBITRIL\VALSARTAN
     Indication: CARDIAC FAILURE
     Dosage: 1.5 DF, BID  (49.51 MG)
     Route: 048

REACTIONS (8)
  - Fall [Recovering/Resolving]
  - Wrong technique in product usage process [Not Recovered/Not Resolved]
  - Dyspnoea [Unknown]
  - Pruritus [Unknown]
  - Contusion [Recovering/Resolving]
  - Blood glucose decreased [Recovered/Resolved]
  - Somnolence [Unknown]
  - Dizziness [Unknown]

NARRATIVE: CASE EVENT DATE: 20200323
